FAERS Safety Report 18845817 (Version 1)
Quarter: 2021Q1

REPORT INFORMATION
  Report Type: Report from Study
  Country: US (occurrence: US)
  Receive Date: 20210203
  Receipt Date: 20210203
  Transmission Date: 20210419
  Serious: No
  Sender: FDA-Public Use
  Company Number: US-EXELIXIS-CABO-20030630

PATIENT
  Sex: Female

DRUGS (1)
  1. CABOMETYX [Suspect]
     Active Substance: CABOZANTINIB S-MALATE
     Indication: RENAL CELL CARCINOMA
     Dosage: 60 MG, QD
     Dates: start: 20200520, end: 20200623

REACTIONS (7)
  - Somnolence [Unknown]
  - Skin exfoliation [Unknown]
  - Impaired healing [Unknown]
  - Diarrhoea [Recovering/Resolving]
  - Hypophagia [Unknown]
  - Stomatitis [Unknown]
  - Blood pressure increased [Recovered/Resolved]
